FAERS Safety Report 4801736-0 (Version None)
Quarter: 2005Q4

REPORT INFORMATION
  Report Type: 
  Country: None (occurrence: None)
  Receive Date: 20051013
  Receipt Date: 20051013
  Transmission Date: 20060501
  Serious: Yes (Hospitalization)
  Sender: FDA-Public Use
  Company Number: None

PATIENT
  Sex: Male
  Weight: 99.7913 kg

DRUGS (2)
  1. TOPAMAX [Suspect]
     Indication: EPILEPSY
     Dates: start: 20020101, end: 20020401
  2. TOPAMAX [Suspect]
     Indication: EPILEPSY
     Dates: start: 20031001, end: 20040401

REACTIONS (16)
  - ABNORMAL DREAMS [None]
  - BIPOLAR DISORDER [None]
  - CONDITION AGGRAVATED [None]
  - CONVULSION [None]
  - DIABETES MELLITUS NON-INSULIN-DEPENDENT [None]
  - DRUG HYPERSENSITIVITY [None]
  - ECONOMIC PROBLEM [None]
  - HOSTILITY [None]
  - INSOMNIA [None]
  - JUDGEMENT IMPAIRED [None]
  - LEGAL PROBLEM [None]
  - LOSS OF EMPLOYMENT [None]
  - MOOD ALTERED [None]
  - PSYCHOTIC DISORDER [None]
  - TREATMENT NONCOMPLIANCE [None]
  - WEIGHT DECREASED [None]
